FAERS Safety Report 11383339 (Version 2)
Quarter: 2015Q4

REPORT INFORMATION
  Report Type: Spontaneous
  Country: US (occurrence: BR)
  Receive Date: 20150814
  Receipt Date: 20151028
  Transmission Date: 20160304
  Serious: Yes (Other)
  Sender: FDA-Public Use
  Company Number: US-BIOGENIDEC-2015BI091434

PATIENT
  Age: 45 Year
  Sex: Male
  Weight: 78 kg

DRUGS (2)
  1. AVONEX [Suspect]
     Active Substance: INTERFERON BETA-1A
     Indication: MULTIPLE SCLEROSIS
     Route: 030
     Dates: start: 20050630, end: 20050820
  2. AVONEX [Suspect]
     Active Substance: INTERFERON BETA-1A
     Indication: MULTIPLE SCLEROSIS
     Route: 030
     Dates: start: 2003, end: 20050522

REACTIONS (2)
  - Lymphogranuloma venereum [Unknown]
  - Lymph node tuberculosis [Not Recovered/Not Resolved]

NARRATIVE: CASE EVENT DATE: 20050812
